FAERS Safety Report 24949889 (Version 1)
Quarter: 2025Q1

REPORT INFORMATION
  Report Type: Spontaneous
  Country: US (occurrence: None)
  Receive Date: 20250207
  Receipt Date: 20250207
  Transmission Date: 20250408
  Serious: No
  Sender: FDA-CTU
  Company Number: None

PATIENT
  Age: 67 Year
  Sex: Female
  Weight: 54 kg

DRUGS (12)
  1. ALENDRONATE [Suspect]
     Active Substance: ALENDRONATE SODIUM
     Indication: Osteoporosis
     Dates: start: 20241230, end: 20241230
  2. CARVEDILOL [Concomitant]
     Active Substance: CARVEDILOL
  3. LEVOTHYROXINE [Concomitant]
     Active Substance: LEVOTHYROXINE
  4. AMLODIPINE [Concomitant]
     Active Substance: AMLODIPINE BESYLATE
  5. CANNABIDIOL [Concomitant]
     Active Substance: CANNABIDIOL
  6. VITAMIN C [Concomitant]
     Active Substance: ASCORBIC ACID
  7. VITAMIN D3 [Concomitant]
     Active Substance: CHOLECALCIFEROL
  8. JWH-018 [Concomitant]
     Active Substance: JWH-018
  9. MAGNESIUM [Concomitant]
     Active Substance: MAGNESIUM
  10. POTASSIUM [Concomitant]
     Active Substance: POTASSIUM
  11. PROBIOTICS NOS [Concomitant]
     Active Substance: PROBIOTICS NOS
  12. VITAMIN B COMPLEX [Concomitant]
     Active Substance: CYANOCOBALAMIN\DEXPANTHENOL\NIACINAMIDE\PYRIDOXINE HYDROCHLORIDE\RIBOFLAVIN 5^-PHOSPHATE SODIUM\THIA

REACTIONS (2)
  - Pain in jaw [None]
  - Arthralgia [None]

NARRATIVE: CASE EVENT DATE: 20241230
